FAERS Safety Report 7754161-7 (Version None)
Quarter: 2011Q3

REPORT INFORMATION
  Report Type: 
  Country: None (occurrence: None)
  Receive Date: 20110915
  Receipt Date: 20110912
  Transmission Date: 20111222
  Serious: No
  Sender: FDA-Public Use
  Company Number: US-PFIZER INC-2011195217

PATIENT

DRUGS (1)
  1. ADVIL LIQUI-GELS [Suspect]
     Indication: INFLAMMATION
     Dosage: 800 MG, 3X/DAY

REACTIONS (1)
  - OEDEMA PERIPHERAL [None]
